FAERS Safety Report 20350100 (Version 2)
Quarter: 2022Q2

REPORT INFORMATION
  Report Type: Spontaneous
  Country: JP (occurrence: JP)
  Receive Date: 20220119
  Receipt Date: 20220623
  Transmission Date: 20220721
  Serious: Yes (Hospitalization)
  Sender: FDA-Public Use
  Company Number: JP-ELI_LILLY_AND_COMPANY-JP202201003351

PATIENT
  Age: 75 Year
  Sex: Male
  Weight: 45 kg

DRUGS (7)
  1. CYRAMZA [Suspect]
     Active Substance: RAMUCIRUMAB
     Indication: Gastric cancer
     Dosage: 470 MG, OTHER
     Route: 041
     Dates: start: 20210323, end: 20220103
  2. TAXOL [Suspect]
     Active Substance: PACLITAXEL
     Indication: Gastric cancer
     Dosage: 120 MG, OTHER
     Route: 041
     Dates: start: 20210323, end: 20211230
  3. CALONAL [Concomitant]
     Active Substance: ACETAMINOPHEN
     Indication: Pain
     Dosage: 200 MG, BID
     Route: 048
  4. SODIUM FERROUS CITRATE [Concomitant]
     Active Substance: SODIUM FERROUS CITRATE
     Indication: Anaemia
     Dosage: 50 MG, DAILY
     Route: 048
  5. CINAL [ASCORBIC ACID;CALCIUM PANTOTHENATE] [Concomitant]
     Indication: Vitamin supplementation
     Route: 048
  6. CABPIRIN [Concomitant]
     Indication: Myocardial infarction
     Dosage: UNK
     Route: 048
     Dates: start: 200909, end: 20211230
  7. ATORVASTATIN [Concomitant]
     Active Substance: ATORVASTATIN
     Indication: Myocardial infarction
     Dosage: UNK
     Route: 048
     Dates: start: 200909, end: 20211230

REACTIONS (2)
  - Tumour haemorrhage [Recovered/Resolved]
  - Epistaxis [Unknown]

NARRATIVE: CASE EVENT DATE: 20211230
